FAERS Safety Report 20988023 (Version 1)
Quarter: 2022Q2

REPORT INFORMATION
  Report Type: Spontaneous
  Country: FR (occurrence: FR)
  Receive Date: 20220621
  Receipt Date: 20220621
  Transmission Date: 20220720
  Serious: Yes (Hospitalization, Other)
  Sender: FDA-Public Use
  Company Number: None

PATIENT
  Age: 61 Year
  Sex: Male
  Weight: 55 kg

DRUGS (12)
  1. EZETIMIBE [Suspect]
     Active Substance: EZETIMIBE
     Indication: Ischaemic cardiomyopathy
     Dosage: UNIT DOSE : 10 MG , FREQUENCY TIME : 1 DAYS , DURATION : 305 DAYS
     Route: 048
     Dates: start: 20210519, end: 20220320
  2. RAMIPRIL [Suspect]
     Active Substance: RAMIPRIL
     Indication: Hypertension
     Dosage: SCORED TABLET , FORM STRENGTH :  5MG , UNIT DOSE : 5 MG , FREQUENCY TIME :  1 DAYS
     Route: 048
     Dates: end: 20220315
  3. CLOPIDOGREL [Suspect]
     Active Substance: CLOPIDOGREL BISULFATE
     Indication: Ischaemic cardiomyopathy
     Dosage: UNIT DOSE : 75 MG , FORM STRENGTH : 75 MG , FREQUENCY TIME : 1 DAYS , DURATION : 5 YEARS
     Route: 048
     Dates: start: 2017, end: 20220316
  4. PIPERACILLIN SODIUM\TAZOBACTAM SODIUM [Suspect]
     Active Substance: PIPERACILLIN SODIUM\TAZOBACTAM SODIUM
     Indication: Septic shock
     Dosage: 16 GRAM DAILY; 4GX4/D , UNIT DOSE : 16 GRAM , FREQUENCY TIME : 1 DAYS , DURATION : 15 DAYS
     Route: 042
     Dates: start: 20220324, end: 20220408
  5. HEPARIN CALCIUM [Suspect]
     Active Substance: HEPARIN CALCIUM
     Indication: Pulmonary embolism
     Dosage: ACCORDING TO ANTI XA ,HEPARINE CALCIQUE , DURATION : 14 DAYS
     Route: 058
     Dates: start: 20220316, end: 20220330
  6. ELIQUIS [Suspect]
     Active Substance: APIXABAN
     Indication: Pulmonary embolism
     Dosage: UNIT DOSE : 10 MG , FREQUENCY TIME : 1 DAYS , DURATION : 107 DAYS , FORM STRENGTH : 5 MG
     Route: 048
     Dates: start: 20211129, end: 20220316
  7. CEFUROXIME [Suspect]
     Active Substance: CEFUROXIME
     Indication: Bronchitis
     Dosage: 500 MILLIGRAM DAILY; 250MG TWICE A DAY , UNIT DOSE : 500 MG , FREQUENCY TIME : 1 DAYS , DURATION : 7
     Route: 042
     Dates: start: 20220222, end: 20220301
  8. ALFUZOSIN [Suspect]
     Active Substance: ALFUZOSIN
     Indication: Benign prostatic hyperplasia
     Dosage: UNIT DOSE: 2.5MG , FORM STRENGTH : 2.5 MG , FREQUENCY TIME : 1 DAY , DURATION : 314 DAYS
     Route: 048
     Dates: start: 20210519, end: 20220329
  9. SPIKEVAX [Suspect]
     Active Substance: ELASOMERAN
     Indication: COVID-19 immunisation
     Dosage: D2 , UNIT DOSE : 1 DF , FREQUENCY TIME : 1 TOTAL
     Route: 030
     Dates: start: 20211230
  10. BISOPROLOL FUMARATE [Suspect]
     Active Substance: BISOPROLOL FUMARATE
     Indication: Hypertension
     Dosage: SCORED TABLET, UNIT DOSE: 10 MG , FORM STRENGTH : 10 MG , FREQUENCY TIME : 1 DAY , DURATION : 300 DA
     Route: 048
     Dates: start: 20210519, end: 20220315
  11. LANSOPRAZOLE [Concomitant]
     Active Substance: LANSOPRAZOLE
     Indication: Product used for unknown indication
  12. ROSUVASTATIN [Concomitant]
     Active Substance: ROSUVASTATIN
     Indication: Product used for unknown indication

REACTIONS (1)
  - Acquired haemophilia [Recovering/Resolving]

NARRATIVE: CASE EVENT DATE: 20220330
